FAERS Safety Report 7538211-9 (Version None)
Quarter: 2011Q2

REPORT INFORMATION
  Report Type: 
  Country: None (occurrence: None)
  Receive Date: 20110609
  Receipt Date: 20021030
  Transmission Date: 20111010
  Serious: Yes (Death)
  Sender: FDA-Public Use
  Company Number: PHFR2002GB03410

PATIENT
  Sex: Female
  Weight: 70 kg

DRUGS (2)
  1. VENLAFAXINE [Concomitant]
     Indication: DEPRESSION
     Dosage: UNKNOWN
     Route: 048
     Dates: start: 19981230, end: 20021015
  2. CLOZAPINE [Suspect]
     Indication: SCHIZOPHRENIA
     Dosage: 400 MG/DAY
     Route: 048
     Dates: start: 20020419, end: 20021015

REACTIONS (1)
  - MYOCARDIAL INFARCTION [None]
